FAERS Safety Report 25331291 (Version 1)
Quarter: 2025Q2

REPORT INFORMATION
  Report Type: Spontaneous
  Country: FR (occurrence: FR)
  Receive Date: 20250519
  Receipt Date: 20250519
  Transmission Date: 20250717
  Serious: Yes (Hospitalization, Other)
  Sender: HIKMA
  Company Number: None

PATIENT
  Age: 60 Year
  Sex: Female

DRUGS (2)
  1. ATRACURIUM [Suspect]
     Active Substance: ATRACURIUM
     Indication: Wrong drug
     Route: 042
     Dates: start: 20240411, end: 20240411
  2. TRIMEBUTINE [Concomitant]
     Active Substance: TRIMEBUTINE
     Indication: Wrong drug
     Route: 065

REACTIONS (4)
  - Oxygen saturation decreased [Recovered/Resolved]
  - Loss of consciousness [Recovered/Resolved]
  - Product administration error [Recovered/Resolved]
  - Wrong drug [Recovered/Resolved]

NARRATIVE: CASE EVENT DATE: 20240411
